FAERS Safety Report 24357904 (Version 1)
Quarter: 2024Q3

REPORT INFORMATION
  Report Type: Spontaneous
  Country: US (occurrence: None)
  Receive Date: 20240924
  Receipt Date: 20240924
  Transmission Date: 20241017
  Serious: Yes (Other)
  Sender: Public
  Company Number: None

PATIENT
  Age: 71 Year
  Sex: Female
  Weight: 60.3 kg

DRUGS (17)
  1. PROLIA [Suspect]
     Active Substance: DENOSUMAB
     Indication: Osteopenia
     Route: 058
  2. FLUVOXAMINE [Concomitant]
  3. LAMOTRIGINE [Concomitant]
  4. Clonzepam [Concomitant]
  5. SEROQUEL [Concomitant]
  6. estradiol vaginal cream [Concomitant]
  7. trim o san gel [Concomitant]
  8. GABAPENTIN [Concomitant]
  9. POLYETHYLENE [Concomitant]
  10. glycol 3350 [Concomitant]
  11. LACTULOSE [Concomitant]
  12. psyllium husk [Concomitant]
  13. Advil [Concomitant]
  14. Benefited Fish oil [Concomitant]
  15. CALCIUM [Concomitant]
  16. vitamin d daily [Concomitant]
  17. docudate sodium [Concomitant]

REACTIONS (5)
  - Injury [None]
  - Osteonecrosis of jaw [None]
  - Speech disorder [None]
  - Irritable bowel syndrome [None]
  - Fungal infection [None]

NARRATIVE: CASE EVENT DATE: 20240301
